FAERS Safety Report 9848939 (Version 1)
Quarter: 2014Q1

REPORT INFORMATION
  Report Type: Spontaneous
  Country: US (occurrence: None)
  Receive Date: 20140127
  Receipt Date: 20140127
  Transmission Date: 20141002
  Serious: Yes (Other)
  Sender: FDA-Public Use
  Company Number: None

PATIENT
  Age: 54 Year
  Sex: Female
  Weight: 90.72 kg

DRUGS (1)
  1. ZYRTEC [Suspect]
     Indication: ARTHROPOD STING
     Dosage: TAKEN BY MOUTH
     Dates: start: 20130831, end: 20140118

REACTIONS (1)
  - Pruritus [None]
